FAERS Safety Report 6366793-1 (Version None)
Quarter: 2009Q3

REPORT INFORMATION
  Report Type: 
  Country: None (occurrence: None)
  Receive Date: 20090921
  Receipt Date: 20090910
  Transmission Date: 20100115
  Serious: Yes (Disabling)
  Sender: FDA-Public Use
  Company Number: CA-BAYER-200924340NA

PATIENT
  Age: 36 Year
  Sex: Female
  Weight: 64 kg

DRUGS (6)
  1. MIRENA [Suspect]
     Indication: DRUG USE FOR UNKNOWN INDICATION
     Dosage: CONTINUOUS
     Route: 015
     Dates: start: 20081201, end: 20090123
  2. DAILY MULTIVITAMIN [Concomitant]
  3. APO-MEFENAMIC [Concomitant]
  4. BETAHISTINE [Concomitant]
  5. EXTRA STRENGTH TYLENOL [Concomitant]
  6. NOVO-KETOROLAC [Concomitant]

REACTIONS (8)
  - DIZZINESS [None]
  - DRUG LEVEL INCREASED [None]
  - FATIGUE [None]
  - INTRA-UTERINE CONTRACEPTIVE DEVICE REMOVAL [None]
  - IUCD COMPLICATION [None]
  - MOBILITY DECREASED [None]
  - UTERINE DISORDER [None]
  - UTERINE SPASM [None]
